FAERS Safety Report 24279208 (Version 5)
Quarter: 2024Q4

REPORT INFORMATION
  Report Type: Spontaneous
  Country: JP (occurrence: JP)
  Receive Date: 20240903
  Receipt Date: 20241226
  Transmission Date: 20250115
  Serious: Yes (Hospitalization, Other)
  Sender: PFIZER
  Company Number: JP-PFIZER INC-PV202400113984

PATIENT
  Age: 40 Year
  Sex: Female
  Weight: 55 kg

DRUGS (4)
  1. PREMARIN [Suspect]
     Active Substance: ESTROGENS, CONJUGATED
     Indication: Infertility
     Dosage: 0.625 MG, 1X/DAY (FROM THIRD DAY OF MENSES FOR ABOUT 10 DAYS PER MONTH)
     Route: 048
     Dates: start: 2020
  2. PREMARIN [Suspect]
     Active Substance: ESTROGENS, CONJUGATED
     Dosage: UNK
     Route: 048
     Dates: start: 202301, end: 20240821
  3. CLOMID [Concomitant]
     Active Substance: CLOMIPHENE CITRATE
     Indication: Infertility
     Dosage: 50 MG, DAILY (FROM THIRD DAY OF MENSES FOR ABOUT 10 DAYS PER MONTH)
  4. DOXYCYCLINE HYDROCHLORIDE [Concomitant]
     Active Substance: DOXYCYCLINE HYDROCHLORIDE
     Indication: Endometritis
     Dosage: 200 MG, 2X/DAY
     Dates: start: 20240805, end: 20240819

REACTIONS (4)
  - Toxic epidermal necrolysis [Recovering/Resolving]
  - Stevens-Johnson syndrome [Recovering/Resolving]
  - COVID-19 [Recovered/Resolved]
  - Nail operation [Unknown]

NARRATIVE: CASE EVENT DATE: 20240807
